FAERS Safety Report 6717024-1 (Version None)
Quarter: 2010Q2

REPORT INFORMATION
  Report Type: 
  Country: None (occurrence: None)
  Receive Date: 20100506
  Receipt Date: 20100506
  Transmission Date: 20101027
  Serious: Yes (Disabling)
  Sender: FDA-Public Use
  Company Number: None

PATIENT
  Age: 53 Year
  Sex: Female
  Weight: 88.4514 kg

DRUGS (1)
  1. HALDOL [Suspect]
     Indication: BIPOLAR DISORDER
     Dosage: LOW DOSE ? MONTHLY
     Dates: start: 19950101, end: 20100101

REACTIONS (4)
  - DYSPHAGIA [None]
  - MUSCULAR WEAKNESS [None]
  - PARKINSON'S DISEASE [None]
  - QUALITY OF LIFE DECREASED [None]
